FAERS Safety Report 25204783 (Version 1)
Quarter: 2025Q2

REPORT INFORMATION
  Report Type: Spontaneous
  Country: LB (occurrence: LB)
  Receive Date: 20250416
  Receipt Date: 20250416
  Transmission Date: 20250716
  Serious: Yes (Other)
  Sender: ROCHE
  Company Number: LB-ROCHE-10000252321

PATIENT
  Sex: Female

DRUGS (22)
  1. GAZYVA [Suspect]
     Active Substance: OBINUTUZUMAB
     Indication: B-cell lymphoma
     Route: 065
     Dates: start: 20170301, end: 20180101
  2. RITUXIMAB [Suspect]
     Active Substance: RITUXIMAB
     Indication: B-cell lymphoma
     Route: 065
     Dates: start: 20170301, end: 20180101
  3. RITUXIMAB [Suspect]
     Active Substance: RITUXIMAB
     Route: 065
     Dates: start: 20240301, end: 20240501
  4. RITUXIMAB [Suspect]
     Active Substance: RITUXIMAB
     Route: 065
     Dates: start: 20240801, end: 20241101
  5. RITUXIMAB [Suspect]
     Active Substance: RITUXIMAB
     Route: 065
     Dates: start: 20241201, end: 20241219
  6. RITUXIMAB [Suspect]
     Active Substance: RITUXIMAB
     Route: 065
     Dates: start: 20250118, end: 20250323
  7. BENDAMUSTINE [Suspect]
     Active Substance: BENDAMUSTINE
     Indication: B-cell lymphoma
     Route: 065
     Dates: start: 20170301, end: 20180101
  8. CYCLOPHOSPHAMIDE [Suspect]
     Active Substance: CYCLOPHOSPHAMIDE
     Indication: B-cell lymphoma
     Route: 065
     Dates: start: 20240301, end: 20240501
  9. CYCLOPHOSPHAMIDE [Suspect]
     Active Substance: CYCLOPHOSPHAMIDE
     Route: 065
     Dates: start: 20240801, end: 20241101
  10. VINCRISTINE [Suspect]
     Active Substance: VINCRISTINE
     Indication: B-cell lymphoma
     Route: 065
     Dates: start: 20240301, end: 20240501
  11. PREDNISONE [Suspect]
     Active Substance: PREDNISONE
     Indication: B-cell lymphoma
     Route: 065
     Dates: start: 20240301, end: 20240501
  12. PREDNISONE [Suspect]
     Active Substance: PREDNISONE
     Route: 065
     Dates: start: 20240801, end: 20241101
  13. DOXORUBICIN [Suspect]
     Active Substance: DOXORUBICIN
     Indication: B-cell lymphoma
     Route: 065
     Dates: start: 20240801, end: 20241101
  14. DEXAMETHASONE [Suspect]
     Active Substance: DEXAMETHASONE
     Indication: B-cell lymphoma
     Route: 065
     Dates: start: 20241201, end: 20241219
  15. DEXAMETHASONE [Suspect]
     Active Substance: DEXAMETHASONE
     Route: 065
     Dates: start: 20241230, end: 20250113
  16. CYTARABINE [Suspect]
     Active Substance: CYTARABINE
     Indication: B-cell lymphoma
     Route: 065
     Dates: start: 20241201, end: 20241219
  17. CYTARABINE [Suspect]
     Active Substance: CYTARABINE
     Route: 065
     Dates: start: 20241230, end: 20250113
  18. CISPLATIN [Suspect]
     Active Substance: CISPLATIN
     Indication: B-cell lymphoma
     Route: 065
     Dates: start: 20241201, end: 20241219
  19. CISPLATIN [Suspect]
     Active Substance: CISPLATIN
     Route: 065
     Dates: start: 20241230, end: 20250113
  20. OXALIPLATIN [Suspect]
     Active Substance: OXALIPLATIN
     Indication: B-cell lymphoma
     Route: 065
     Dates: start: 20241230, end: 20250113
  21. LENALIDOMIDE [Suspect]
     Active Substance: LENALIDOMIDE
     Indication: B-cell lymphoma
     Route: 065
     Dates: start: 20250118, end: 20250323
  22. ZANUBRUTINIB [Suspect]
     Active Substance: ZANUBRUTINIB
     Indication: B-cell lymphoma
     Route: 065
     Dates: start: 20240501, end: 20240801

REACTIONS (1)
  - Disease progression [Unknown]
